FAERS Safety Report 17009451 (Version 2)
Quarter: 2019Q4

REPORT INFORMATION
  Report Type: Spontaneous
  Country: CA (occurrence: CA)
  Receive Date: 20191108
  Receipt Date: 20191217
  Transmission Date: 20200122
  Serious: Yes (Other)
  Sender: FDA-Public Use
  Company Number: CA-SAOL THERAPEUTICS-2019SAO00445

PATIENT
  Age: 61 Year
  Sex: Male
  Weight: 77.3 kg

DRUGS (1)
  1. WINRHO SDF [Suspect]
     Active Substance: HUMAN RHO(D) IMMUNE GLOBULIN
     Indication: IMMUNE THROMBOCYTOPENIC PURPURA
     Dosage: 4000 ?G; FRACTION: ALL
     Route: 042
     Dates: start: 20190118, end: 20190118

REACTIONS (1)
  - Acute haemolytic transfusion reaction [Recovering/Resolving]

NARRATIVE: CASE EVENT DATE: 20190118
